FAERS Safety Report 24218400 (Version 1)
Quarter: 2024Q3

REPORT INFORMATION
  Report Type: Spontaneous
  Country: US (occurrence: US)
  Receive Date: 20240816
  Receipt Date: 20240816
  Transmission Date: 20241016
  Serious: No
  Sender: Haleon PLC
  Company Number: US-HALEON-2192294

PATIENT
  Age: 53 Year
  Sex: Female

DRUGS (1)
  1. ADVIL LIQUI-GELS [Suspect]
     Active Substance: IBUPROFEN
     Indication: Product used for unknown indication
     Dosage: EXPDATE:20260531
     Route: 048
     Dates: start: 20240814

REACTIONS (2)
  - Off label use [Unknown]
  - Intentional product use issue [Unknown]
